FAERS Safety Report 4731315-5 (Version None)
Quarter: 2005Q3

REPORT INFORMATION
  Report Type: 
  Country: None (occurrence: None)
  Receive Date: 20050729
  Receipt Date: 20050718
  Transmission Date: 20060218
  Serious: Yes (Other)
  Sender: FDA-Public Use
  Company Number: 2005104640

PATIENT
  Age: 14 Year
  Sex: Male
  Weight: 63.5036 kg

DRUGS (2)
  1. FRESHBURST LISTERINE (MENTHOL, METHYL SALICYLATE, EUCALYPTOL, THYMOL) [Suspect]
     Indication: INTENTIONAL MISUSE
     Dosage: 1/2 BOTTLE ONCE, ORAL
     Route: 048
     Dates: start: 20050718, end: 20050718
  2. FRESHBURST LISTERINE (MENTHOL, METHYL SALICYLATE, EUCALYPTOL, THYMOL) [Suspect]
     Indication: OVERDOSE
     Dosage: 1/2 BOTTLE ONCE, ORAL
     Route: 048
     Dates: start: 20050718, end: 20050718

REACTIONS (3)
  - INTENTIONAL MISUSE [None]
  - MALAISE [None]
  - OVERDOSE [None]
